FAERS Safety Report 21682030 (Version 2)
Quarter: 2022Q4

REPORT INFORMATION
  Report Type: Spontaneous
  Country: VN (occurrence: VN)
  Receive Date: 20221205
  Receipt Date: 20221219
  Transmission Date: 20230113
  Serious: Yes (Life-Threatening, Hospitalization)
  Sender: FDA-Public Use
  Company Number: VN-BAYER-2022P025973

PATIENT
  Age: 42 Year
  Sex: Male
  Weight: 67 kg

DRUGS (2)
  1. ULTRAVIST [Suspect]
     Active Substance: IOPROMIDE
     Indication: Computerised tomogram liver
     Dosage: 60 ML, ONCE
     Route: 042
     Dates: start: 20220925, end: 20220925
  2. ULTRAVIST [Suspect]
     Active Substance: IOPROMIDE
     Indication: Computerised tomogram abdomen
     Dosage: 60 ML, ONCE
     Route: 042
     Dates: start: 20221125, end: 20221125

REACTIONS (7)
  - Chills [Recovering/Resolving]
  - Respiratory rate increased [Recovering/Resolving]
  - Feeling cold [Recovering/Resolving]
  - Aphasia [Recovering/Resolving]
  - Hypotension [None]
  - Speech disorder [None]
  - Lethargy [None]

NARRATIVE: CASE EVENT DATE: 20220925
